FAERS Safety Report 18393639 (Version 1)
Quarter: 2020Q4

REPORT INFORMATION
  Report Type: Spontaneous
  Country: CN (occurrence: CN)
  Receive Date: 20201016
  Receipt Date: 20201016
  Transmission Date: 20210114
  Serious: Yes (Disabling)
  Sender: FDA-Public Use
  Company Number: CN-PFIZER INC-2020401102

PATIENT
  Age: 65 Year
  Sex: Female

DRUGS (5)
  1. DECITABINE. [Suspect]
     Active Substance: DECITABINE
     Dosage: 15 MG, CYCLIC: D3
  2. CYTARABINE. [Suspect]
     Active Substance: CYTARABINE
     Indication: LEUKAEMIA
     Dosage: 15 MG, CYCLIC: EVERY 12 HOURS (Q12H) D4-13
     Route: 058
     Dates: start: 20200418, end: 20200427
  3. DECITABINE. [Suspect]
     Active Substance: DECITABINE
     Dosage: 10 MG, CYCLIC: D4,5
     Dates: end: 20200419
  4. DECITABINE. [Suspect]
     Active Substance: DECITABINE
     Indication: LEUKAEMIA
     Dosage: 20 MG, CYCLIC: D1,2
     Route: 041
     Dates: start: 20200415
  5. HOMOHARRINGTONINE [Suspect]
     Active Substance: OMACETAXINE MEPESUCCINATE
     Indication: LEUKAEMIA
     Dosage: 2 MG, CYCLIC: 1X/DAY D4-10
     Route: 041
     Dates: start: 20200418, end: 20200422

REACTIONS (3)
  - Gastrointestinal haemorrhage [Recovering/Resolving]
  - Platelet count decreased [Recovering/Resolving]
  - Myelosuppression [Recovering/Resolving]

NARRATIVE: CASE EVENT DATE: 20200428
